FAERS Safety Report 4424061-9 (Version None)
Quarter: 2004Q3

REPORT INFORMATION
  Report Type: 
  Country: None (occurrence: None)
  Receive Date: 20040805
  Receipt Date: 20040805
  Transmission Date: 20050211
  Serious: Yes (Hospitalization)
  Sender: FDA-Public Use
  Company Number: None

PATIENT
  Age: 43 Year
  Sex: Female
  Weight: 72.3 kg

DRUGS (8)
  1. CPT -11 [Suspect]
     Indication: ADENOCARCINOMA
     Dosage: 75 MG/M2 Q WK X 2
     Dates: start: 20040630
  2. CPT -11 [Suspect]
     Indication: ADENOCARCINOMA
     Dosage: 75 MG/M2 Q WK X 2
     Dates: start: 20040709
  3. EPIRUBICIN [Suspect]
     Indication: ADENOCARCINOMA
     Dosage: 30 MG Q WK X 2
     Dates: start: 20040629
  4. EPIRUBICIN [Suspect]
     Indication: ADENOCARCINOMA
     Dosage: 30 MG Q WK X 2
     Dates: start: 20040708
  5. LOVENOX [Concomitant]
  6. SYNTHROID [Concomitant]
  7. PROTONIX [Concomitant]
  8. DIRAGESIC PATCH [Concomitant]

REACTIONS (2)
  - DISEASE PROGRESSION [None]
  - PULMONARY EMBOLISM [None]
